FAERS Safety Report 11254021 (Version 1)
Quarter: 2015Q3

REPORT INFORMATION
  Report Type: Spontaneous
  Country: CH (occurrence: CH)
  Receive Date: 20150709
  Receipt Date: 20150709
  Transmission Date: 20151125
  Serious: Yes (Hospitalization)
  Sender: FDA-Public Use
  Company Number: CH-BAYER-2015-300286

PATIENT
  Age: 63 Year
  Sex: Male

DRUGS (4)
  1. XOFIGO [Suspect]
     Active Substance: RADIUM RA-223 DICHLORIDE
     Indication: HORMONE-REFRACTORY PROSTATE CANCER
     Dosage: 4.08 MBQ
     Route: 042
     Dates: start: 20150401, end: 20150401
  2. XOFIGO [Suspect]
     Active Substance: RADIUM RA-223 DICHLORIDE
     Indication: METASTASES TO BONE
     Dosage: 4.15 MBQ
     Route: 042
     Dates: start: 20150304, end: 20150304
  3. XOFIGO [Suspect]
     Active Substance: RADIUM RA-223 DICHLORIDE
     Indication: HORMONE-REFRACTORY PROSTATE CANCER
     Dosage: 4.13 MBQ
     Route: 042
     Dates: start: 20150204, end: 20150204
  4. XOFIGO [Suspect]
     Active Substance: RADIUM RA-223 DICHLORIDE
     Indication: HORMONE-REFRACTORY PROSTATE CANCER
     Dosage: 3.97 MBQ
     Route: 042
     Dates: start: 20150429, end: 20150429

REACTIONS (3)
  - Thrombocytopenia [Unknown]
  - Spinal pain [None]
  - Anaemia of malignant disease [Unknown]

NARRATIVE: CASE EVENT DATE: 20150525
